FAERS Safety Report 6079314-8 (Version None)
Quarter: 2009Q1

REPORT INFORMATION
  Report Type: 
  Country: None (occurrence: None)
  Receive Date: 20090216
  Receipt Date: 20090204
  Transmission Date: 20090719
  Serious: Yes (Other)
  Sender: FDA-Public Use
  Company Number: JP-MERCK-0902USA01017

PATIENT
  Age: 29 Year
  Sex: Female

DRUGS (2)
  1. PRIMAXIN [Suspect]
     Indication: TONSILLITIS
     Route: 042
  2. PREDNISOLONE [Concomitant]
     Indication: SYSTEMIC LUPUS ERYTHEMATOSUS
     Route: 065

REACTIONS (1)
  - NEUROPSYCHIATRIC LUPUS [None]
